FAERS Safety Report 7362927-0 (Version None)
Quarter: 2011Q1

REPORT INFORMATION
  Report Type: 
  Country: None (occurrence: None)
  Receive Date: 20110321
  Receipt Date: 20110314
  Transmission Date: 20110831
  Serious: No
  Sender: FDA-Public Use
  Company Number: US-BIOGENIDEC-2011BI009731

PATIENT
  Age: 78 Year
  Sex: Female

DRUGS (1)
  1. TYSABRI [Suspect]
     Indication: MULTIPLE SCLEROSIS
     Route: 042
     Dates: start: 20090415

REACTIONS (4)
  - BALANCE DISORDER [None]
  - DEPRESSION [None]
  - ASTHENIA [None]
  - GAIT DISTURBANCE [None]
